FAERS Safety Report 5672411-8 (Version None)
Quarter: 2008Q1

REPORT INFORMATION
  Report Type: 
  Country: None (occurrence: None)
  Receive Date: 20080318
  Receipt Date: 20080318
  Transmission Date: 20080703
  Serious: Yes (Life-Threatening, Hospitalization)
  Sender: FDA-Public Use
  Company Number: None

PATIENT
  Age: 35 Year
  Sex: Female
  Weight: 47.6277 kg

DRUGS (2)
  1. PHENTERMINE [Suspect]
     Indication: KINESITHERAPY
     Dosage: 15 ML. ONCE DAILY PO
     Route: 048
     Dates: start: 20070101, end: 20080124
  2. PHENTERMINE [Suspect]
     Indication: MEDICAL DIET
     Dosage: 15 ML. ONCE DAILY PO
     Route: 048
     Dates: start: 20070101, end: 20080124

REACTIONS (17)
  - ABNORMAL SENSATION IN EYE [None]
  - ALOPECIA [None]
  - DISORIENTATION [None]
  - DISTURBANCE IN ATTENTION [None]
  - DIZZINESS [None]
  - DYSARTHRIA [None]
  - DYSGEUSIA [None]
  - DYSPNOEA [None]
  - EYE SWELLING [None]
  - FACIAL SPASM [None]
  - HEADACHE [None]
  - IMPAIRED DRIVING ABILITY [None]
  - JUDGEMENT IMPAIRED [None]
  - NAUSEA [None]
  - OEDEMA PERIPHERAL [None]
  - PAIN [None]
  - VISION BLURRED [None]
